FAERS Safety Report 5419347-5 (Version None)
Quarter: 2007Q3

REPORT INFORMATION
  Report Type: 
  Country: None (occurrence: None)
  Receive Date: 20070815
  Receipt Date: 20070815
  Transmission Date: 20080115
  Serious: Yes (Other)
  Sender: FDA-Public Use
  Company Number: None

PATIENT
  Age: 71 Year
  Sex: Female
  Weight: 60.782 kg

DRUGS (1)
  1. ALTABAX [Suspect]
     Indication: INFECTION PROPHYLAXIS
     Dosage: THIN LAYER  2 X DAY
     Dates: start: 20070812, end: 20070812

REACTIONS (2)
  - APPLICATION SITE PAIN [None]
  - OPEN WOUND [None]
